FAERS Safety Report 7732787-4 (Version None)
Quarter: 2011Q3

REPORT INFORMATION
  Report Type: 
  Country: None (occurrence: None)
  Receive Date: 20110901
  Receipt Date: 20110823
  Transmission Date: 20111222
  Serious: Yes (Life-Threatening)
  Sender: FDA-Public Use
  Company Number: 949070

PATIENT
  Age: 26 Year
  Sex: Female
  Weight: 58.5 kg

DRUGS (16)
  1. SYMBICORT [Concomitant]
  2. AMIKACIN [Concomitant]
  3. CREON [Concomitant]
  4. ALBUTEROL [Concomitant]
  5. SODIUM CHLORIDE [Concomitant]
  6. VITAMIN E-400 [Concomitant]
  7. NORGESTIMATE AND ETHINYL ESTRADIOL [Concomitant]
  8. NYSTATIN [Concomitant]
  9. CALCICHEW D3 [Concomitant]
  10. VORICONAZOLE [Concomitant]
  11. CHLORHEXIDINE GLUCONATE [Concomitant]
  12. COD LIVER OIL [Concomitant]
  13. LANSOPRAZOLE [Concomitant]
  14. MEROPENEM [Suspect]
     Indication: CYSTIC FIBROSIS
     Dosage: 2 G GRAM(S), 1 DAY, INTRAVENOUS (NOT OTHERWISE SPECIFIED)
     Route: 042
     Dates: start: 20110407, end: 20110407
  15. CASPOFUNGIN ACETATE [Concomitant]
  16. CALOGEN [Concomitant]

REACTIONS (3)
  - PRODUCT SUBSTITUTION ISSUE [None]
  - INFECTIVE PULMONARY EXACERBATION OF CYSTIC FIBROSIS [None]
  - ANAPHYLACTIC REACTION [None]
